FAERS Safety Report 5773350-4 (Version None)
Quarter: 2008Q2

REPORT INFORMATION
  Report Type: 
  Country: None (occurrence: None)
  Receive Date: 20080616
  Receipt Date: 20080602
  Transmission Date: 20081010
  Serious: Yes (Other)
  Sender: FDA-Public Use
  Company Number: US-ELI_LILLY_AND_COMPANY-US200806000482

PATIENT
  Sex: Female
  Weight: 42.63 kg

DRUGS (6)
  1. STRATTERA [Suspect]
     Indication: ATTENTION DEFICIT/HYPERACTIVITY DISORDER
     Route: 048
     Dates: start: 20050101, end: 20050101
  2. DEPAKOTE [Concomitant]
     Indication: COMPLEX PARTIAL SEIZURES
     Dosage: 500 MG, UNK
     Route: 048
     Dates: start: 20040801
  3. METHOTREXATE [Concomitant]
  4. MELOXICAM [Concomitant]
  5. FOLIC ACID [Concomitant]
  6. M.V.I. [Concomitant]

REACTIONS (4)
  - CONVULSION [None]
  - DRUG INTERACTION [None]
  - TREMOR [None]
  - WEIGHT DECREASED [None]
